FAERS Safety Report 23189998 (Version 1)
Quarter: 2023Q4

REPORT INFORMATION
  Report Type: Spontaneous
  Country: DE (occurrence: DE)
  Receive Date: 20231116
  Receipt Date: 20231116
  Transmission Date: 20240110
  Serious: Yes (Congenital Anomaly, Other)
  Sender: FDA-Public Use
  Company Number: DE-EMBRYOTOX-202115417

PATIENT
  Age: 1 Day
  Sex: Female
  Weight: 2.16 kg

DRUGS (6)
  1. VENLAFAXINE [Suspect]
     Active Substance: VENLAFAXINE HYDROCHLORIDE
     Indication: Depression
     Dosage: 37.5 [MG/D ]
     Route: 048
     Dates: start: 20210129, end: 20211015
  2. INSULIN NOS [Concomitant]
     Active Substance: INSULIN NOS
     Indication: Gestational diabetes
     Dosage: 4 IU/D
  3. METHYLDOPA [Concomitant]
     Active Substance: METHYLDOPA
     Indication: Pre-eclampsia
     Dosage: 250 [MG/D ]
     Route: 048
  4. Comirnaty monovalent (BioNTech/Pfizer) [Concomitant]
     Indication: COVID-19 immunisation
     Dosage: 2ND VACCINATION
     Route: 030
     Dates: start: 20210901, end: 20210901
  5. Comirnaty monovalent (BioNTech/Pfizer) [Concomitant]
     Indication: COVID-19 immunisation
     Dosage: 1ST VACCINATION
     Dates: start: 20210804, end: 20210804
  6. ASPIRIN [Concomitant]
     Active Substance: ASPIRIN
     Indication: Prophylaxis
     Dosage: 100 [MG/D ]
     Route: 048

REACTIONS (4)
  - Haemangioma of liver [Not Recovered/Not Resolved]
  - Small for dates baby [Recovered/Resolved]
  - Infantile haemangioma [Not Recovered/Not Resolved]
  - Foetal exposure during pregnancy [Unknown]

NARRATIVE: CASE EVENT DATE: 20211001
